FAERS Safety Report 5057628-8 (Version None)
Quarter: 2006Q3

REPORT INFORMATION
  Report Type: 
  Country: None (occurrence: None)
  Receive Date: 20060721
  Receipt Date: 20060104
  Transmission Date: 20061208
  Serious: No
  Sender: FDA-Public Use
  Company Number: US-GLAXOSMITHKLINE-A0587734A

PATIENT
  Age: 60 Year
  Sex: Female

DRUGS (6)
  1. AVANDIA [Suspect]
     Dosage: 2MG TWICE PER DAY
     Route: 048
     Dates: start: 20050401, end: 20050801
  2. METFORMIN [Suspect]
     Route: 065
  3. CORGARD [Concomitant]
  4. PROTONIX [Concomitant]
  5. ACCURETIC [Concomitant]
  6. VITORIN [Concomitant]

REACTIONS (1)
  - DRUG INEFFECTIVE [None]
